FAERS Safety Report 26212308 (Version 1)
Quarter: 2025Q4

REPORT INFORMATION
  Report Type: Spontaneous
  Country: EG (occurrence: EG)
  Receive Date: 20251230
  Receipt Date: 20251230
  Transmission Date: 20260118
  Serious: Yes (Other)
  Sender: Haleon PLC
  Company Number: EG-002147023-NVSC2025EG196598

PATIENT

DRUGS (3)
  1. VOLTAREN [Suspect]
     Active Substance: DICLOFENAC SODIUM
     Indication: Product used for unknown indication
     Dosage: ROUTE:UNKNOWN
  2. DICLOFENAC [Suspect]
     Active Substance: DICLOFENAC
     Indication: Product used for unknown indication
     Dosage: ROUTE:UNKNOWN
  3. CATAFLAM [Suspect]
     Active Substance: DICLOFENAC POTASSIUM
     Indication: Product used for unknown indication
     Dosage: ROUTE:UNKNOWN

REACTIONS (4)
  - Renal ischaemia [Unknown]
  - Renal tubular injury [Unknown]
  - Blood pressure increased [Unknown]
  - Chronic kidney disease [Unknown]
